FAERS Safety Report 5012909-9 (Version None)
Quarter: 2006Q2

REPORT INFORMATION
  Report Type: 
  Country: None (occurrence: None)
  Receive Date: 20060525
  Receipt Date: 20060525
  Transmission Date: 20061013
  Serious: Yes (Hospitalization)
  Sender: FDA-Public Use
  Company Number: None

PATIENT
  Age: 86 Year
  Sex: Female
  Weight: 47.1741 kg

DRUGS (12)
  1. PROPAFENONE SR 335MG BID [Suspect]
     Indication: ATRIAL FIBRILLATION
     Dosage: PO
     Route: 048
     Dates: start: 20050830
  2. METOPROLOL [Concomitant]
  3. WARFARIN [Concomitant]
  4. APAP CODIENE [Concomitant]
  5. AMBIEN [Concomitant]
  6. MIACALCIN [Concomitant]
  7. ATACAND [Concomitant]
  8. ROBAXIN [Concomitant]
  9. EVISTA [Concomitant]
  10. DETROL LA [Concomitant]
  11. ACIPHEX [Concomitant]
  12. PAXIL [Concomitant]

REACTIONS (3)
  - FALL [None]
  - PLEURAL EFFUSION [None]
  - RIB FRACTURE [None]
